FAERS Safety Report 6578785-8 (Version None)
Quarter: 2010Q1

REPORT INFORMATION
  Report Type: 
  Country: None (occurrence: None)
  Receive Date: 20100202
  Receipt Date: 20100115
  Transmission Date: 20100710
  Serious: Yes (Hospitalization)
  Sender: FDA-Public Use
  Company Number: 490625

PATIENT
  Age: 50 Year
  Sex: Female

DRUGS (2)
  1. FENTANYL-100 [Suspect]
     Indication: PAIN MANAGEMENT
     Dates: start: 20100108, end: 20100108
  2. KETAMINE HCL [Suspect]
     Indication: PAIN MANAGEMENT
     Dates: start: 20100108, end: 20100108

REACTIONS (3)
  - DEPRESSED LEVEL OF CONSCIOUSNESS [None]
  - DEVICE COMPUTER ISSUE [None]
  - DEVICE FAILURE [None]
